FAERS Safety Report 21300145 (Version 1)
Quarter: 2022Q3

REPORT INFORMATION
  Report Type: Spontaneous
  Country: US (occurrence: None)
  Receive Date: 20220906
  Receipt Date: 20220906
  Transmission Date: 20221027
  Serious: No
  Sender: FDA-Public Use
  Company Number: None

PATIENT
  Sex: Female

DRUGS (1)
  1. LENALIDOMIDE [Suspect]
     Active Substance: LENALIDOMIDE
     Indication: Plasma cell myeloma
     Dosage: 15 MG DAILY BY  MOUTH
     Route: 048
     Dates: start: 202203

REACTIONS (4)
  - Nasopharyngitis [None]
  - Infection [None]
  - Cyst [None]
  - Therapy cessation [None]
